FAERS Safety Report 18321660 (Version 2)
Quarter: 2020Q4

REPORT INFORMATION
  Report Type: Spontaneous
  Country: US (occurrence: US)
  Receive Date: 20200929
  Receipt Date: 20201017
  Transmission Date: 20210113
  Serious: No
  Sender: FDA-Public Use
  Company Number: US-HETERO-HET2020US01084

PATIENT
  Sex: Female
  Weight: 68 kg

DRUGS (3)
  1. VALACYCLOVIR [Suspect]
     Active Substance: VALACYCLOVIR HYDROCHLORIDE
     Indication: HERPES ZOSTER
     Dosage: 1 GRAM, BID( FOR 2 MONTHS)
     Route: 048
  2. VALACYCLOVIR [Suspect]
     Active Substance: VALACYCLOVIR HYDROCHLORIDE
     Dosage: HALF TABLET FOR 2 WEEKS
     Route: 048
  3. VALACYCLOVIR [Suspect]
     Active Substance: VALACYCLOVIR HYDROCHLORIDE
     Dosage: 1 GRAM, QD( FOR NEXT 2 MONTH)
     Route: 048

REACTIONS (3)
  - Inappropriate schedule of product administration [Unknown]
  - Abdominal discomfort [Recovered/Resolved]
  - Wrong technique in product usage process [Unknown]
